FAERS Safety Report 15237790 (Version 2)
Quarter: 2018Q3

REPORT INFORMATION
  Report Type: Spontaneous
  Country: US (occurrence: US)
  Receive Date: 20180803
  Receipt Date: 20180806
  Transmission Date: 20181010
  Serious: Yes (Death)
  Sender: FDA-Public Use
  Company Number: US-ROCHE-2163732

PATIENT
  Age: 80 Year
  Sex: Female

DRUGS (1)
  1. ACTIVASE [Suspect]
     Active Substance: ALTEPLASE
     Indication: CEREBROVASCULAR ACCIDENT
     Route: 065
     Dates: start: 20180705

REACTIONS (1)
  - Death [Fatal]

NARRATIVE: CASE EVENT DATE: 20180705
